FAERS Safety Report 15697835 (Version 1)
Quarter: 2018Q4

REPORT INFORMATION
  Report Type: Spontaneous
  Country: US (occurrence: US)
  Receive Date: 20181126
  Receipt Date: 20181126
  Transmission Date: 20190205
  Serious: Yes (Hospitalization)
  Sender: FDA-Public Use
  Company Number: None

PATIENT
  Age: 76 Year
  Sex: Male
  Weight: 82.96 kg

DRUGS (1)
  1. YESCARTA [Suspect]
     Active Substance: AXICABTAGENE CILOLEUCEL
     Indication: DIFFUSE LARGE B-CELL LYMPHOMA
     Dosage: ?          OTHER DOSE:2X10~6 KG MAX 2X1^;?
     Route: 042
     Dates: start: 20181008

REACTIONS (3)
  - Confusional state [None]
  - Mental status changes [None]
  - Neurotoxicity [None]

NARRATIVE: CASE EVENT DATE: 20181008
